FAERS Safety Report 7576344-1 (Version None)
Quarter: 2011Q2

REPORT INFORMATION
  Report Type: 
  Country: None (occurrence: None)
  Receive Date: 20110628
  Receipt Date: 20090331
  Transmission Date: 20111010
  Serious: Yes (Death, Other)
  Sender: FDA-Public Use
  Company Number: US-BAYER-200922728NA

PATIENT
  Age: 67 Year
  Sex: Male
  Weight: 88.435 kg

DRUGS (28)
  1. RED BLOOD CELLS [Concomitant]
     Route: 042
  2. HUMALIN [Concomitant]
     Dosage: 100 U/ML
     Route: 042
  3. TOPROL-XL [Concomitant]
     Dosage: 100 MG, QD
     Route: 048
  4. PAPAVERINE [Concomitant]
     Dosage: 30MG/CC
     Route: 042
     Dates: start: 20011017
  5. LASIX [Concomitant]
     Dosage: 40 MG
     Route: 048
  6. ADALAT CC [Concomitant]
     Dosage: 60 MG, QD
     Route: 048
  7. ANCEF [Concomitant]
     Dosage: 1 GRAM [2 DOSES GIVEN)
     Route: 042
     Dates: start: 20011017
  8. TRASYLOL [Suspect]
     Indication: PRODUCT USED FOR UNKNOWN INDICATION
     Dosage: 1 ML, ONCE
     Route: 042
     Dates: start: 20011017, end: 20011017
  9. PRINIVIL [Concomitant]
     Dosage: 10 MG
     Route: 048
  10. PEPCID [Concomitant]
     Dosage: 20 MG, BID
     Route: 042
  11. CARDURA [Concomitant]
     Dosage: 4 MG, QD
     Route: 048
  12. MIDAZOLAM HCL [Concomitant]
     Dosage: UNK
     Route: 042
     Dates: start: 20011017
  13. TRASYLOL [Suspect]
     Dosage: 200 ML OF LOADING DOSE
     Route: 042
     Dates: start: 20011017, end: 20011017
  14. LEVOPHED [Concomitant]
     Dosage: UNK
     Route: 042
     Dates: start: 20011017
  15. PHENYLEPHRINE HCL [Concomitant]
     Dosage: UNK
     Route: 042
     Dates: start: 20011017
  16. HYDROCHLOROTHIAZIDE [Concomitant]
     Dosage: 25 MG
     Route: 048
  17. HEPARIN [Concomitant]
     Dosage: 15000 UNITS
     Route: 042
     Dates: start: 20011017
  18. ALBUMIN (HUMAN) [Concomitant]
     Dosage: 50 G
     Route: 042
     Dates: start: 20011017
  19. TRASYLOL [Suspect]
     Dosage: 400ML INFUSION TOTAL DOSE
     Route: 042
     Dates: start: 20011017, end: 20011017
  20. HEPARIN [Concomitant]
     Dosage: 32000 UNITS
     Route: 042
     Dates: start: 20011017
  21. DOPAMINE HCL [Concomitant]
     Dosage: UNK
     Route: 042
     Dates: start: 20011017
  22. LASIX [Concomitant]
     Dosage: 40MG
     Route: 042
     Dates: start: 20011017
  23. PRINIVIL [Concomitant]
     Dosage: 20MG ONE TABLET TWICE DAILY
     Route: 048
  24. ACETYLSALICYLIC ACID SRT [Concomitant]
     Dosage: 325 MG
     Route: 048
  25. PROTAMINE SULFATE [Concomitant]
     Dosage: 10MG/CC
     Route: 042
     Dates: start: 20011017
  26. ZOCOR [Concomitant]
     Dosage: 80MG ONE-HALF TABLET DAILY
     Route: 048
  27. PRINIVIL [Concomitant]
     Dosage: 5MG ONE TABLET TWICE DAILY
     Route: 048
  28. HEPARIN [Concomitant]
     Dosage: 10000 U
     Route: 042
     Dates: start: 20011017

REACTIONS (9)
  - RENAL FAILURE [None]
  - ANXIETY [None]
  - PAIN [None]
  - RENAL IMPAIRMENT [None]
  - UNEVALUABLE EVENT [None]
  - FEAR [None]
  - RENAL INJURY [None]
  - EMOTIONAL DISTRESS [None]
  - STRESS [None]
